FAERS Safety Report 7090929-0 (Version None)
Quarter: 2010Q4

REPORT INFORMATION
  Report Type: 
  Country: None (occurrence: None)
  Receive Date: 20101109
  Receipt Date: 20090428
  Transmission Date: 20110411
  Serious: Yes (Death)
  Sender: FDA-Public Use
  Company Number: US-BAYER-201038856NA

PATIENT
  Age: 71 Year
  Sex: Female

DRUGS (1)
  1. TRASYLOL [Suspect]
     Indication: SURGERY
     Route: 042
     Dates: start: 20010101

REACTIONS (9)
  - ANXIETY [None]
  - CEREBROVASCULAR ACCIDENT [None]
  - DIABETES MELLITUS [None]
  - EMOTIONAL DISTRESS [None]
  - INJURY [None]
  - MYOCARDIAL ISCHAEMIA [None]
  - PAIN [None]
  - RENAL FAILURE CHRONIC [None]
  - STRESS [None]
